FAERS Safety Report 13554321 (Version 3)
Quarter: 2017Q3

REPORT INFORMATION
  Report Type: Spontaneous
  Country: US (occurrence: US)
  Receive Date: 20170517
  Receipt Date: 20170821
  Transmission Date: 20171127
  Serious: Yes (Hospitalization, Disabling, Other)
  Sender: FDA-Public Use
  Company Number: US-BRISTOL-MYERS SQUIBB COMPANY-BMS-2017-042550

PATIENT
  Sex: Female

DRUGS (2)
  1. ABILIFY [Suspect]
     Active Substance: ARIPIPRAZOLE
     Indication: BIPOLAR II DISORDER
     Route: 065
  2. ABILIFY [Suspect]
     Active Substance: ARIPIPRAZOLE
     Indication: SCHIZOAFFECTIVE DISORDER
     Dosage: 2 MG, BID
     Route: 048
     Dates: start: 2012, end: 2013

REACTIONS (11)
  - Depression [Not Recovered/Not Resolved]
  - Blood pressure decreased [Unknown]
  - Obsessive-compulsive disorder [Recovered/Resolved]
  - Mood swings [Recovered/Resolved]
  - Off label use [Unknown]
  - Disability [Unknown]
  - Palpitations [Unknown]
  - Cardiac murmur [Unknown]
  - Prescribed underdose [Unknown]
  - Ulcer [Unknown]
  - Wrong technique in product usage process [Unknown]
